FAERS Safety Report 6199956-9 (Version None)
Quarter: 2009Q2

REPORT INFORMATION
  Report Type: 
  Country: None (occurrence: None)
  Receive Date: 20090518
  Receipt Date: 20090128
  Transmission Date: 20091009
  Serious: No
  Sender: FDA-Public Use
  Company Number: WAES 0812USA01798

PATIENT
  Age: 50 Year
  Sex: Female

DRUGS (2)
  1. JANUVIA [Suspect]
     Indication: TYPE 2 DIABETES MELLITUS
     Dosage: 100 MG/PO
     Route: 048
     Dates: start: 20080801, end: 20080101
  2. METFORMIN HYDROCHLORIDE [Concomitant]

REACTIONS (1)
  - RENAL IMPAIRMENT [None]
